FAERS Safety Report 7617424-1 (Version None)
Quarter: 2011Q3

REPORT INFORMATION
  Report Type: 
  Country: None (occurrence: None)
  Receive Date: 20110718
  Receipt Date: 20110715
  Transmission Date: 20111222
  Serious: Yes (Other)
  Sender: FDA-Public Use
  Company Number: US-PFIZER INC-2011160925

PATIENT
  Sex: Female
  Weight: 81.6 kg

DRUGS (1)
  1. CHANTIX [Suspect]
     Indication: SMOKING CESSATION THERAPY
     Dosage: UNK
     Route: 048
     Dates: start: 20110101, end: 20110709

REACTIONS (6)
  - IRRITABILITY [None]
  - NAUSEA [None]
  - AGITATION [None]
  - DEPRESSED MOOD [None]
  - SUICIDAL IDEATION [None]
  - VOMITING [None]
